FAERS Safety Report 5136402-8 (Version None)
Quarter: 2006Q4

REPORT INFORMATION
  Report Type: 
  Country: None (occurrence: None)
  Receive Date: 20061020
  Receipt Date: 20061005
  Transmission Date: 20070319
  Serious: Yes (Hospitalization, Disabling)
  Sender: FDA-Public Use
  Company Number: 2006EU002782

PATIENT
  Age: 51 Year
  Sex: Male

DRUGS (19)
  1. PROGRAF [Suspect]
     Indication: LIVER TRANSPLANT
     Dosage: D, ORAL
     Route: 048
     Dates: start: 20040101
  2. RAPAMUNE [Suspect]
     Indication: LIVER TRANSPLANT
     Dosage: 2 MG, D, ORAL
     Route: 048
     Dates: start: 20060808, end: 20060828
  3. ALENDRONATE SODIUM [Concomitant]
  4. CALCICHEW D3 (COLECALCIFEROL) [Concomitant]
  5. CALCIUM RESONIUM (CALCIUM POLYSTYRENE SULFONATE) [Concomitant]
  6. CHOLESTYRAMINE RESI (COLESTYRAMINE) [Concomitant]
  7. CODEINE SUL TAB [Concomitant]
  8. CREON (LIPASE) [Concomitant]
  9. FLUCONAZOLE [Concomitant]
  10. GABAPENTIN [Concomitant]
  11. HYDROCORTISONE (HYDROCORTISONE HYDROGEN SUCCINATE) [Concomitant]
  12. LOPERAMIDE HCL [Concomitant]
  13. METRONIDAZOLE (METRONIDAZOLE SODIUM) [Concomitant]
  14. MYCOPHENOLATE MOFETIL [Concomitant]
  15. NOVOMIX (INSULIN ASPART PROTAMINE) [Concomitant]
  16. OMEPRAZOLE [Concomitant]
  17. ACETAMINOPHEN [Concomitant]
  18. VALGANCICLOVIR HCL [Concomitant]
  19. WARFARIN SODIUM [Concomitant]

REACTIONS (3)
  - BLINDNESS [None]
  - HYPERKALAEMIA [None]
  - OPTIC ISCHAEMIC NEUROPATHY [None]
